FAERS Safety Report 4495027-8 (Version None)
Quarter: 2004Q4

REPORT INFORMATION
  Report Type: 
  Country: None (occurrence: None)
  Receive Date: 20041103
  Receipt Date: 20041022
  Transmission Date: 20050328
  Serious: Yes (Hospitalization)
  Sender: FDA-Public Use
  Company Number: 205334

PATIENT
  Age: 50 Year
  Sex: Male

DRUGS (4)
  1. AVONEX [Suspect]
     Indication: MULTIPLE SCLEROSIS
     Dosage: 30 MCG QW IM
     Route: 030
     Dates: start: 20011031
  2. AVONEX [Suspect]
     Indication: MULTIPLE SCLEROSIS
     Dosage: 30 MCG QW IM
     Route: 030
  3. PAXIL [Concomitant]
  4. VIAGRA [Concomitant]

REACTIONS (5)
  - AMNESIA [None]
  - ARTHRALGIA [None]
  - NERVE COMPRESSION [None]
  - PAIN IN EXTREMITY [None]
  - SWELLING [None]
